FAERS Safety Report 4697159-8 (Version None)
Quarter: 2005Q2

REPORT INFORMATION
  Report Type: 
  Country: None (occurrence: None)
  Receive Date: 20050621
  Receipt Date: 20050621
  Transmission Date: 20051028
  Serious: Yes (Hospitalization)
  Sender: FDA-Public Use
  Company Number: None

PATIENT
  Age: 64 Year
  Sex: Female
  Weight: 77.5651 kg

DRUGS (6)
  1. TOPOTECAN [Suspect]
     Dosage: 1.25 MG/M2 D1-5 IV
     Route: 042
     Dates: start: 20050601, end: 20050605
  2. TENORMIN [Concomitant]
  3. ASPIRIN [Concomitant]
  4. THALIDOMIDE [Concomitant]
  5. MAGNESIUM [Concomitant]
  6. AMILORIDE HCL [Concomitant]

REACTIONS (6)
  - ASTHENIA [None]
  - EAR DISCOMFORT [None]
  - FEBRILE NEUTROPENIA [None]
  - INCREASED UPPER AIRWAY SECRETION [None]
  - PANCYTOPENIA [None]
  - PHARYNGOLARYNGEAL PAIN [None]
